FAERS Safety Report 8292409-3 (Version None)
Quarter: 2012Q2

REPORT INFORMATION
  Report Type: 
  Country: None (occurrence: None)
  Receive Date: 20120417
  Receipt Date: 20120410
  Transmission Date: 20120825
  Serious: Yes (Hospitalization, Other)
  Sender: FDA-Public Use
  Company Number: US-PFIZER INC-2012045814

PATIENT
  Sex: Male
  Weight: 78 kg

DRUGS (2)
  1. SUTENT [Suspect]
     Indication: METASTATIC RENAL CELL CARCINOMA
     Dosage: 50 MG, 1X/DAY (1 CAPSULE DAILY, CYCLE 4 WEEKS ON AND 2 OFF)
     Dates: start: 20120206
  2. ACETYLSALICYLIC ACID [Concomitant]
     Dosage: 81 MG, 1X/DAY

REACTIONS (21)
  - ABDOMINAL PAIN UPPER [None]
  - DYSURIA [None]
  - BLOOD SODIUM ABNORMAL [None]
  - SKIN IRRITATION [None]
  - SLEEP DISORDER [None]
  - POLLAKIURIA [None]
  - INSOMNIA [None]
  - FATIGUE [None]
  - MUSCLE SPASMS [None]
  - ABDOMINAL DISCOMFORT [None]
  - ASTHENIA [None]
  - PERIPHERAL COLDNESS [None]
  - CANDIDIASIS [None]
  - CONTUSION [None]
  - DRY MOUTH [None]
  - CONSTIPATION [None]
  - PAIN IN EXTREMITY [None]
  - WEIGHT DECREASED [None]
  - HAEMORRHAGE [None]
  - ORAL PAIN [None]
  - PALMAR-PLANTAR ERYTHRODYSAESTHESIA SYNDROME [None]
